FAERS Safety Report 7020707-X (Version None)
Quarter: 2010Q3

REPORT INFORMATION
  Report Type: 
  Country: None (occurrence: None)
  Receive Date: 20100929
  Receipt Date: 20100924
  Transmission Date: 20110219
  Serious: Yes (Other)
  Sender: FDA-Public Use
  Company Number: PHHY2010DE50352

PATIENT
  Sex: Male
  Weight: 76 kg

DRUGS (2)
  1. SANDIMMUNE [Suspect]
     Indication: APLASTIC ANAEMIA
     Dosage: 100 MG, BID
     Dates: start: 20060301
  2. SANDIMMUNE [Suspect]
     Dosage: 25 MG, BID
     Route: 048

REACTIONS (4)
  - AGITATION [None]
  - HYPERTENSION [None]
  - PARKINSON'S DISEASE [None]
  - TREMOR [None]
